FAERS Safety Report 8064007-8 (Version None)
Quarter: 2012Q1

REPORT INFORMATION
  Report Type: 
  Country: None (occurrence: None)
  Receive Date: 20120123
  Receipt Date: 20120118
  Transmission Date: 20120608
  Serious: Yes (Other)
  Sender: FDA-Public Use
  Company Number: PHHY2012CA003721

PATIENT
  Sex: Female

DRUGS (5)
  1. VASOTEC [Concomitant]
     Dosage: UNK UKN, UNK
  2. EFFEXOR [Concomitant]
  3. ZOLEDRONOC ACID [Suspect]
     Indication: OSTEOPOROSIS
     Dosage: 5 MG/100ML, YEARLY
     Route: 042
     Dates: start: 20111208
  4. FLONASE [Concomitant]
     Dosage: UNK UKN, UNK
  5. METOPROLOL [Concomitant]
     Dosage: UNK UKN, UNK

REACTIONS (2)
  - TOOTHACHE [None]
  - TOOTH ABSCESS [None]
